FAERS Safety Report 22841085 (Version 3)
Quarter: 2023Q4

REPORT INFORMATION
  Report Type: Spontaneous
  Country: US (occurrence: US)
  Receive Date: 20230820
  Receipt Date: 20231222
  Transmission Date: 20240110
  Serious: No
  Sender: FDA-Public Use
  Company Number: US-LUPIN PHARMACEUTICALS INC.-2023-06760

PATIENT

DRUGS (3)
  1. AMLODIPINE BESYLATE [Suspect]
     Active Substance: AMLODIPINE BESYLATE
     Indication: Chest pain
     Dosage: 1 DOSAGE FORM, QD
     Route: 048
     Dates: start: 20230730, end: 20230803
  2. AMLODIPINE BESYLATE [Suspect]
     Active Substance: AMLODIPINE BESYLATE
     Indication: Blood pressure abnormal
  3. DULOXETINE [Suspect]
     Active Substance: DULOXETINE
     Indication: Pain in extremity
     Dosage: UNK
     Route: 065

REACTIONS (8)
  - Chest pain [Not Recovered/Not Resolved]
  - Malaise [Unknown]
  - Dizziness [Unknown]
  - Product packaging issue [Unknown]
  - Product physical issue [Unknown]
  - Product odour abnormal [Unknown]
  - Product taste abnormal [Unknown]
  - Product use in unapproved indication [Unknown]
